FAERS Safety Report 10146352 (Version 1)
Quarter: 2014Q2

REPORT INFORMATION
  Report Type: Spontaneous
  Country: JP (occurrence: JP)
  Receive Date: 20140501
  Receipt Date: 20140501
  Transmission Date: 20141212
  Serious: Yes (Hospitalization, Other)
  Sender: FDA-Public Use
  Company Number: JP-DSJP-DSJ-2014-106562

PATIENT
  Sex: 0

DRUGS (10)
  1. OLMETEC [Suspect]
     Indication: PRODUCT USED FOR UNKNOWN INDICATION
     Dosage: UNK
     Route: 048
     Dates: end: 20131012
  2. ARICEPT [Suspect]
     Indication: DEMENTIA ALZHEIMER^S TYPE
     Dosage: 5 MG, QD
     Route: 048
     Dates: end: 20131011
  3. DONEPEZIL /01318902/ [Suspect]
     Indication: DEMENTIA ALZHEIMER^S TYPE
     Dosage: 5 MG, QD
     Route: 048
     Dates: start: 20131012, end: 20131031
  4. DONEPEZIL                          /01318902/ [Suspect]
     Dosage: 5 MG, QD
     Route: 048
     Dates: start: 20131121, end: 20131203
  5. AMLODIPINE [Concomitant]
     Dosage: UNK
     Route: 065
  6. DUTASTERIDE [Concomitant]
     Dosage: UNK
     Route: 065
  7. HARNAL [Concomitant]
     Dosage: UNK
     Route: 065
  8. BIOFERMIN [Concomitant]
     Dosage: UNK
     Route: 065
  9. PHELLOBERIN A                      /00515601/ [Concomitant]
     Dosage: UNK
     Route: 065
  10. TANNALBIN [Concomitant]
     Dosage: UNK
     Route: 065

REACTIONS (3)
  - Pancreatitis [Recovering/Resolving]
  - Bacterial diarrhoea [Recovering/Resolving]
  - Dementia [Unknown]
